FAERS Safety Report 5471952-6 (Version None)
Quarter: 2007Q3

REPORT INFORMATION
  Report Type: 
  Country: None (occurrence: None)
  Receive Date: 20070928
  Receipt Date: 20070918
  Transmission Date: 20080115
  Serious: Yes (Other)
  Sender: FDA-Public Use
  Company Number: US-PFIZER INC-2007074932

PATIENT
  Sex: Female
  Weight: 42.2 kg

DRUGS (5)
  1. NORVASC [Interacting]
     Indication: HYPERTENSION
  2. NORVASC [Interacting]
  3. AMLODIPINE [Suspect]
     Indication: HYPERTENSION
  4. LACTAID [Interacting]
     Indication: LACTOSE INTOLERANCE
  5. VITAMIN CAP [Concomitant]

REACTIONS (5)
  - DIARRHOEA [None]
  - DRUG INTERACTION [None]
  - HERNIA [None]
  - PALLOR [None]
  - PANCREATITIS [None]
